FAERS Safety Report 6638001-5 (Version None)
Quarter: 2010Q1

REPORT INFORMATION
  Report Type: 
  Country: None (occurrence: None)
  Receive Date: 20100312
  Receipt Date: 20100310
  Transmission Date: 20100710
  Serious: Yes (Hospitalization)
  Sender: FDA-Public Use
  Company Number: ALL1-2010-01348

PATIENT
  Age: 59 Year
  Sex: Male
  Weight: 110.2 kg

DRUGS (1)
  1. FOSRENOL [Suspect]
     Indication: HYPERPHOSPHATAEMIA
     Dosage: 500 MG, TWO TABLETS  WITH EACH MEAL, OTHER, ORAL
     Route: 048
     Dates: start: 20100201

REACTIONS (2)
  - ABDOMINAL DISCOMFORT [None]
  - DYSPNOEA [None]
